FAERS Safety Report 7671928-4 (Version None)
Quarter: 2011Q3

REPORT INFORMATION
  Report Type: 
  Country: None (occurrence: None)
  Receive Date: 20110809
  Receipt Date: 20110803
  Transmission Date: 20111222
  Serious: Yes (Other)
  Sender: FDA-Public Use
  Company Number: US-GLAXOSMITHKLINE-A0931893A

PATIENT
  Age: 74 Year
  Sex: Female

DRUGS (5)
  1. SINGULAIR [Concomitant]
  2. NASACORT AQ [Concomitant]
  3. ADVAIR DISKUS 100/50 [Suspect]
     Indication: ASTHMA
     Dosage: 1PUFF TWICE PER DAY
     Route: 055
     Dates: start: 20010101
  4. PROAIR HFA [Concomitant]
  5. ALLEGRA [Concomitant]

REACTIONS (5)
  - DYSPNOEA [None]
  - PRODUCT QUALITY ISSUE [None]
  - DRUG INEFFECTIVE [None]
  - DRUG DEPENDENCE [None]
  - HEART RATE INCREASED [None]
